FAERS Safety Report 4339836-4 (Version None)
Quarter: 2004Q2

REPORT INFORMATION
  Report Type: 
  Country: None (occurrence: None)
  Receive Date: 20040412
  Receipt Date: 20040402
  Transmission Date: 20050107
  Serious: Yes (Death, Hospitalization)
  Sender: FDA-Public Use
  Company Number: 2003-12-0801

PATIENT
  Age: 62 Year
  Sex: Female

DRUGS (16)
  1. TEMODAL [Suspect]
     Indication: GLIOBLASTOMA
     Dosage: 240 MG X7DQOW ORAL; 240 MG QD ORAL; 240 MG QD ORAL; 240 MG QD ORAL
     Route: 048
     Dates: start: 20021203, end: 20021209
  2. TEMODAL [Suspect]
     Indication: GLIOBLASTOMA
     Dosage: 240 MG X7DQOW ORAL; 240 MG QD ORAL; 240 MG QD ORAL; 240 MG QD ORAL
     Route: 048
     Dates: start: 20021217, end: 20021223
  3. TEMODAL [Suspect]
     Indication: GLIOBLASTOMA
     Dosage: 240 MG X7DQOW ORAL; 240 MG QD ORAL; 240 MG QD ORAL; 240 MG QD ORAL
     Route: 048
     Dates: start: 20021203, end: 20030212
  4. TEMODAL [Suspect]
     Indication: GLIOBLASTOMA
     Dosage: 240 MG X7DQOW ORAL; 240 MG QD ORAL; 240 MG QD ORAL; 240 MG QD ORAL
     Route: 048
     Dates: start: 20030123, end: 20030212
  5. DEPAKINE CHRONO (SODIUM VALPROATE) [Concomitant]
  6. MEDROL [Concomitant]
  7. MPORAL (OMEPRAZOLE) [Concomitant]
  8. DIFFU-K [Concomitant]
  9. RYTHMOL [Concomitant]
  10. BASDENE [Concomitant]
  11. TRILEPTAL [Concomitant]
  12. CYTOTECT [Concomitant]
  13. URBANYL [Concomitant]
  14. INSULIN [Concomitant]
  15. DEROXAT [Concomitant]
  16. LEXOMIL (BROMAZEPAM) [Concomitant]

REACTIONS (2)
  - HAEMATOTOXICITY [None]
  - PANCYTOPENIA [None]
